FAERS Safety Report 6992501-7 (Version None)
Quarter: 2010Q3

REPORT INFORMATION
  Report Type: 
  Country: None (occurrence: None)
  Receive Date: 20100917
  Receipt Date: 20100827
  Transmission Date: 20110219
  Serious: Yes (Other)
  Sender: FDA-Public Use
  Company Number: US-BAYER-201024606NA

PATIENT
  Age: 32 Year
  Sex: Female
  Weight: 66 kg

DRUGS (5)
  1. YAZ [Suspect]
     Indication: CONTRACEPTION
     Route: 048
     Dates: start: 20090212, end: 20090101
  2. NSAIDS [Concomitant]
  3. ANTIBIOTICS [Concomitant]
  4. PAIN PILLS [Concomitant]
  5. PROTONIX [Concomitant]

REACTIONS (2)
  - ABDOMINAL PAIN [None]
  - BILIARY COLIC [None]
